FAERS Safety Report 8781542 (Version 2)
Quarter: 2012Q4

REPORT INFORMATION
  Report Type: 
  Country: IT (occurrence: IT)
  Receive Date: 20120913
  Receipt Date: 20120928
  Transmission Date: 20130627
  Serious: Yes (Hospitalization)
  Sender: FDA-Public Use
  Company Number: IT-PFIZER INC-2012225021

PATIENT
  Age: 60 Year
  Sex: Male

DRUGS (2)
  1. HALCION [Suspect]
     Dosage: 0.125 mg, 8 dosage units
     Route: 048
     Dates: start: 20120901, end: 20120901
  2. ANTABUSE [Suspect]
     Dosage: 400 mg, 24 dosage units
     Route: 048
     Dates: start: 20120901, end: 20120901

REACTIONS (4)
  - Intentional overdose [Recovered/Resolved]
  - Intentional self-injury [Recovered/Resolved]
  - Bradyphrenia [Recovered/Resolved]
  - Sopor [Recovered/Resolved]
